FAERS Safety Report 10636206 (Version 1)
Quarter: 2014Q4

REPORT INFORMATION
  Report Type: Report from Study
  Country: US (occurrence: US)
  Receive Date: 20141205
  Receipt Date: 20141205
  Transmission Date: 20150529
  Serious: Yes (Death, Hospitalization, Other)
  Sender: FDA-Public Use
  Company Number: US-ROXANE LABORATORIES, INC.-2014-BI-58920GD

PATIENT
  Age: 24 Year
  Sex: Male

DRUGS (2)
  1. AMPHETAMINE [Suspect]
     Active Substance: AMPHETAMINE
     Indication: PRODUCT USED FOR UNKNOWN INDICATION
     Route: 048
  2. MORPHINE [Suspect]
     Active Substance: MORPHINE
     Indication: PRODUCT USED FOR UNKNOWN INDICATION
     Route: 048

REACTIONS (14)
  - Acute kidney injury [Unknown]
  - Hypoglycaemia [Unknown]
  - Generalised tonic-clonic seizure [Unknown]
  - Drug abuse [Fatal]
  - Ischaemic hepatitis [Unknown]
  - Brain herniation [Unknown]
  - Cyanosis [Unknown]
  - Disseminated intravascular coagulation [Unknown]
  - Brain oedema [Unknown]
  - Pulmonary oedema [Unknown]
  - Pyrexia [Unknown]
  - Brain death [Fatal]
  - Pleural effusion [Unknown]
  - Hyperhidrosis [Unknown]

NARRATIVE: CASE EVENT DATE: 2012
